FAERS Safety Report 4397604-1 (Version None)
Quarter: 2004Q3

REPORT INFORMATION
  Report Type: 
  Country: None (occurrence: None)
  Receive Date: 20040708
  Receipt Date: 20040625
  Transmission Date: 20050211
  Serious: Yes (Other)
  Sender: FDA-Public Use
  Company Number: 2004RL000066

PATIENT
  Age: 63 Year
  Sex: Male

DRUGS (5)
  1. PROPAFENONE HCL [Suspect]
     Indication: ARRHYTHMIA
     Dosage: 150 MG; BID; PO
     Route: 048
     Dates: start: 20030501
  2. ATENOLOL [Concomitant]
  3. CINNARIZINE [Concomitant]
  4. OMEPRAZOLE [Concomitant]
  5. BROMAZEPAM [Concomitant]

REACTIONS (2)
  - ABDOMINAL PAIN UPPER [None]
  - GASTRIC CANCER [None]
